FAERS Safety Report 15065110 (Version 1)
Quarter: 2018Q2

REPORT INFORMATION
  Report Type: Spontaneous
  Country: US (occurrence: US)
  Receive Date: 20180626
  Receipt Date: 20180626
  Transmission Date: 20180711
  Serious: No
  Sender: FDA-Public Use
  Company Number: US-009507513-1806USA000268

PATIENT
  Sex: Female

DRUGS (1)
  1. ASMANEX [Suspect]
     Active Substance: MOMETASONE FUROATE
     Dosage: UNK
     Route: 055

REACTIONS (3)
  - Product quality issue [Unknown]
  - Tongue disorder [Unknown]
  - Eating disorder [Unknown]
